FAERS Safety Report 8242718-9 (Version None)
Quarter: 2012Q1

REPORT INFORMATION
  Report Type: 
  Country: None (occurrence: None)
  Receive Date: 20120314
  Receipt Date: 20100126
  Transmission Date: 20120608
  Serious: No
  Sender: FDA-Public Use
  Company Number: PHEH2O10US01835

PATIENT
  Age: 49 Year
  Sex: Female

DRUGS (5)
  1. XANAX [Concomitant]
  2. FLEXERIL [Concomitant]
  3. MOBIC [Concomitant]
  4. FANAPT [Suspect]
     Dosage: 1 MG,
     Dates: start: 20100112, end: 20100120
  5. HYDROCODONE BITARTRATE [Concomitant]

REACTIONS (4)
  - RASH [None]
  - NASAL CONGESTION [None]
  - LETHARGY [None]
  - SKIN ULCER [None]
